FAERS Safety Report 12051972 (Version 1)
Quarter: 2016Q1

REPORT INFORMATION
  Report Type: Spontaneous
  Country: US (occurrence: US)
  Receive Date: 20160209
  Receipt Date: 20160209
  Transmission Date: 20160526
  Serious: Yes (Other)
  Sender: FDA-Public Use
  Company Number: US-DRREDDYS-USA/USA/15/0050598

PATIENT
  Age: 29 Year
  Sex: Female

DRUGS (1)
  1. SIMVASTATIN 20 MG [Suspect]
     Active Substance: SIMVASTATIN
     Indication: TYPE IIA HYPERLIPIDAEMIA
     Route: 065
     Dates: start: 201010

REACTIONS (3)
  - Urticaria [Recovered/Resolved]
  - Respiratory tract oedema [Recovered/Resolved]
  - Pruritus [Recovered/Resolved]
